FAERS Safety Report 4293680-5 (Version None)
Quarter: 2004Q1

REPORT INFORMATION
  Report Type: 
  Country: None (occurrence: None)
  Receive Date: 20040212
  Receipt Date: 20040206
  Transmission Date: 20041129
  Serious: Yes (Other)
  Sender: FDA-Public Use
  Company Number: US-BRISTOL-MYERS SQUIBB COMPANY-12498283

PATIENT
  Age: 69 Year
  Sex: Female
  Weight: 68 kg

DRUGS (7)
  1. TEQUIN [Suspect]
     Indication: CELLULITIS
     Route: 048
     Dates: start: 20040128
  2. GLUCOTROL XL [Concomitant]
     Dosage: 20 MG IN THE MORNING AND 10 MG BEFORE DINNER
  3. AVANDIA [Concomitant]
  4. VASOTEC [Concomitant]
  5. EFFEXOR XR [Concomitant]
  6. PHENACETIN [Concomitant]
  7. AMBIEN [Concomitant]

REACTIONS (1)
  - BLOOD GLUCOSE INCREASED [None]
